FAERS Safety Report 24913939 (Version 1)
Quarter: 2025Q1

REPORT INFORMATION
  Report Type: Other
  Country: CA (occurrence: CA)
  Receive Date: 20250202
  Receipt Date: 20250202
  Transmission Date: 20250409
  Serious: Yes (Death, Hospitalization, Other)
  Sender: DEXCEL
  Company Number: CA-DEXPHARM-2025-0731

PATIENT
  Sex: Male

DRUGS (2)
  1. PREDNISOLONE [Suspect]
     Active Substance: PREDNISOLONE
  2. VIGABATRIN [Suspect]
     Active Substance: VIGABATRIN

REACTIONS (2)
  - Toxicity to various agents [Fatal]
  - Magnetic resonance imaging abnormal [Fatal]
